FAERS Safety Report 18431883 (Version 1)
Quarter: 2020Q4

REPORT INFORMATION
  Report Type: Spontaneous
  Country: US (occurrence: US)
  Receive Date: 20201027
  Receipt Date: 20201027
  Transmission Date: 20210114
  Serious: Yes (Life-Threatening, Hospitalization, Other)
  Sender: FDA-Public Use
  Company Number: US-PFIZER INC-2020410511

PATIENT
  Age: 71 Year
  Sex: Male

DRUGS (2)
  1. PHENYTOIN SODIUM. [Suspect]
     Active Substance: PHENYTOIN SODIUM
     Indication: SEIZURE
     Dosage: UNK
  2. FOSPHENYTOIN SODIUM. [Suspect]
     Active Substance: FOSPHENYTOIN SODIUM
     Dosage: UNK (SUPRATHERAPEUTIC DOSE OF FOSPHENYTOIN FOR 9 DAYS)

REACTIONS (6)
  - Toxicity to various agents [Recovering/Resolving]
  - Encephalopathy [Unknown]
  - Respiratory failure [Unknown]
  - Overdose [Unknown]
  - Unresponsive to stimuli [Unknown]
  - Respiratory arrest [Unknown]
